FAERS Safety Report 24823427 (Version 1)
Quarter: 2025Q1

REPORT INFORMATION
  Report Type: Spontaneous
  Country: US (occurrence: US)
  Receive Date: 20250109
  Receipt Date: 20250109
  Transmission Date: 20250409
  Serious: No
  Sender: DR REDDYS
  Company Number: US-DRL-USA-USA/2025/01/000329

PATIENT
  Age: 65 Year
  Sex: Female

DRUGS (1)
  1. FLUOROURACIL [Suspect]
     Active Substance: FLUOROURACIL
     Indication: Skin cancer
     Route: 065
     Dates: start: 20241226, end: 20250102

REACTIONS (3)
  - Lip swelling [Unknown]
  - Rash [Unknown]
  - Eye irritation [Unknown]
